FAERS Safety Report 23944335 (Version 1)
Quarter: 2024Q2

REPORT INFORMATION
  Report Type: Report from Study
  Country: JP (occurrence: JP)
  Receive Date: 20240606
  Receipt Date: 20240606
  Transmission Date: 20240717
  Serious: Yes (Hospitalization, Other)
  Sender: FDA-Public Use
  Company Number: JP-ONO-2024JP011581

PATIENT
  Age: 78 Year
  Sex: Male
  Weight: 62 kg

DRUGS (5)
  1. OPDIVO [Suspect]
     Active Substance: NIVOLUMAB
     Indication: Non-small cell lung cancer recurrent
     Route: 041
     Dates: start: 20240507, end: 20240507
  2. YERVOY [Suspect]
     Active Substance: IPILIMUMAB
     Indication: Non-small cell lung cancer recurrent
     Route: 041
     Dates: start: 20240507, end: 20240507
  3. CARBOCYSTEINE [Concomitant]
     Active Substance: CARBOCYSTEINE
     Indication: Chronic obstructive pulmonary disease
     Dosage: 500 MG, Q8H
     Route: 048
     Dates: start: 20240319
  4. DIMEMORFAN PHOSPHATE [Concomitant]
     Active Substance: DIMEMORFAN PHOSPHATE
     Indication: Chronic obstructive pulmonary disease
     Dosage: 20 MG, Q8H
     Route: 048
     Dates: start: 20240319
  5. MAGNESIUM OXIDE [Concomitant]
     Active Substance: MAGNESIUM OXIDE
     Indication: Constipation
     Dosage: 330 MG, Q8H
     Route: 048
     Dates: start: 20240319

REACTIONS (2)
  - Interstitial lung disease [Recovering/Resolving]
  - Pulmonary toxicity [Recovering/Resolving]

NARRATIVE: CASE EVENT DATE: 20240528
